FAERS Safety Report 9192603 (Version 2)
Quarter: 2013Q2

REPORT INFORMATION
  Report Type: Spontaneous
  Country: US (occurrence: US)
  Receive Date: 20130327
  Receipt Date: 20130530
  Transmission Date: 20140414
  Serious: No
  Sender: FDA-Public Use
  Company Number: US-PFIZER INC-2013095165

PATIENT
  Age: 33 Year
  Sex: Female
  Weight: 74.83 kg

DRUGS (7)
  1. EFFEXOR XR [Suspect]
     Indication: DEPRESSION
     Dosage: 150 MG, DAILY
     Dates: start: 2012, end: 201303
  2. EFFEXOR XR [Suspect]
     Dosage: 75 MG, DAILY
     Dates: start: 201303, end: 201303
  3. EFFEXOR XR [Suspect]
     Dosage: 37.5 MG, DAILY
     Dates: start: 201303, end: 201303
  4. EFFEXOR XR [Suspect]
     Dosage: UNK
     Dates: start: 201303, end: 20130317
  5. LEXAPRO [Suspect]
     Indication: DEPRESSION
     Dosage: UNK
     Dates: end: 2012
  6. TRAZODONE [Concomitant]
     Indication: SLEEP DISORDER
     Dosage: UNK
  7. VALACICLOVIR HYDROCHLORIDE [Concomitant]
     Indication: GENITAL HERPES
     Dosage: 500 MG, DAILY

REACTIONS (6)
  - Drug ineffective [Unknown]
  - Abnormal sensation in eye [Not Recovered/Not Resolved]
  - Sensory disturbance [Not Recovered/Not Resolved]
  - Feeling abnormal [Not Recovered/Not Resolved]
  - Tinnitus [Not Recovered/Not Resolved]
  - Drug dose omission [Unknown]
